FAERS Safety Report 4621538-8 (Version None)
Quarter: 2005Q1

REPORT INFORMATION
  Report Type: 
  Country: None (occurrence: None)
  Receive Date: 20050328
  Receipt Date: 20040203
  Transmission Date: 20050727
  Serious: No
  Sender: FDA-Public Use
  Company Number: 9894

PATIENT
  Age: 50 Year
  Sex: Male

DRUGS (2)
  1. METHOTREXATE [Suspect]
  2. ETANERCEPT [Concomitant]

REACTIONS (3)
  - BONE MARROW DEPRESSION [None]
  - PERICARDIAL EFFUSION [None]
  - PNEUMONIA [None]
